FAERS Safety Report 8610447-5 (Version None)
Quarter: 2012Q3

REPORT INFORMATION
  Report Type: 
  Country: None (occurrence: None)
  Receive Date: 20120822
  Receipt Date: 20120816
  Transmission Date: 20120928
  Serious: No
  Sender: FDA-Public Use
  Company Number: US-PFIZER INC-2012201324

PATIENT
  Age: 62 Year
  Sex: Male
  Weight: 86.168 kg

DRUGS (4)
  1. PHENOBARBITAL [Concomitant]
     Indication: GRAND MAL CONVULSION
     Dosage: 325 MG, UNK
     Dates: start: 19970101
  2. DILANTIN [Suspect]
     Indication: GRAND MAL CONVULSION
     Dosage: 100 MG, 4X/DAY
     Route: 048
     Dates: start: 19660101, end: 20120815
  3. PRIMIDONE [Concomitant]
     Dosage: 250 MG, 1X/DAY
     Dates: start: 19800101
  4. PHENYTOIN [Suspect]
     Indication: GRAND MAL CONVULSION
     Dosage: 100 MG, 4X/DAY
     Dates: start: 20120816

REACTIONS (4)
  - TREMOR [None]
  - SOMNOLENCE [None]
  - FEELING DRUNK [None]
  - HYPOAESTHESIA ORAL [None]
